FAERS Safety Report 15544058 (Version 1)
Quarter: 2018Q4

REPORT INFORMATION
  Report Type: Spontaneous
  Country: US (occurrence: US)
  Receive Date: 20181023
  Receipt Date: 20181023
  Transmission Date: 20190205
  Serious: No
  Sender: FDA-Public Use
  Company Number: US-TAKEDA-2018TEU006137

PATIENT
  Sex: Female

DRUGS (21)
  1. PREVACID [Suspect]
     Active Substance: LANSOPRAZOLE
     Indication: GASTROINTESTINAL DISORDER
  2. PRILOSEC [Suspect]
     Active Substance: OMEPRAZOLE MAGNESIUM
     Indication: AUTOIMMUNE DISORDER
  3. ZANTAC [Suspect]
     Active Substance: RANITIDINE HYDROCHLORIDE
     Indication: GASTROINTESTINAL DISORDER
  4. PREVACID [Suspect]
     Active Substance: LANSOPRAZOLE
     Indication: IMPAIRED GASTRIC EMPTYING
     Dosage: UNK
     Route: 065
  5. PEPCID [Suspect]
     Active Substance: FAMOTIDINE
     Indication: AUTOIMMUNE DISORDER
  6. ACIPHEX [Suspect]
     Active Substance: RABEPRAZOLE SODIUM
     Indication: AUTOIMMUNE DISORDER
  7. PROTONIX [Suspect]
     Active Substance: PANTOPRAZOLE SODIUM
     Indication: IMPAIRED GASTRIC EMPTYING
     Dosage: 40 MG, UNK
     Route: 065
  8. NEXIUM [Suspect]
     Active Substance: ESOMEPRAZOLE MAGNESIUM
     Indication: IMPAIRED GASTRIC EMPTYING
     Dosage: UNK
     Route: 065
  9. ACIPHEX [Suspect]
     Active Substance: RABEPRAZOLE SODIUM
     Indication: IMPAIRED GASTRIC EMPTYING
     Dosage: UNK
     Route: 065
  10. ACIPHEX [Suspect]
     Active Substance: RABEPRAZOLE SODIUM
     Indication: GASTROINTESTINAL DISORDER
  11. PROTONIX [Suspect]
     Active Substance: PANTOPRAZOLE SODIUM
     Indication: GASTROINTESTINAL DISORDER
  12. PRILOSEC [Suspect]
     Active Substance: OMEPRAZOLE MAGNESIUM
     Indication: IMPAIRED GASTRIC EMPTYING
     Dosage: UNK
     Route: 065
  13. ZANTAC [Suspect]
     Active Substance: RANITIDINE HYDROCHLORIDE
     Indication: IMPAIRED GASTRIC EMPTYING
     Dosage: UNK
     Route: 065
  14. ZANTAC [Suspect]
     Active Substance: RANITIDINE HYDROCHLORIDE
     Indication: AUTOIMMUNE DISORDER
  15. PREVACID [Suspect]
     Active Substance: LANSOPRAZOLE
     Indication: AUTOIMMUNE DISORDER
  16. PRILOSEC [Suspect]
     Active Substance: OMEPRAZOLE MAGNESIUM
     Indication: GASTROINTESTINAL DISORDER
  17. PROTONIX [Suspect]
     Active Substance: PANTOPRAZOLE SODIUM
     Indication: AUTOIMMUNE DISORDER
  18. NEXIUM [Suspect]
     Active Substance: ESOMEPRAZOLE MAGNESIUM
     Indication: AUTOIMMUNE DISORDER
  19. PEPCID [Suspect]
     Active Substance: FAMOTIDINE
     Indication: GASTROINTESTINAL DISORDER
  20. NEXIUM [Suspect]
     Active Substance: ESOMEPRAZOLE MAGNESIUM
     Indication: GASTROINTESTINAL DISORDER
  21. PEPCID [Suspect]
     Active Substance: FAMOTIDINE
     Indication: IMPAIRED GASTRIC EMPTYING
     Dosage: UNK
     Route: 065

REACTIONS (2)
  - Migraine [Unknown]
  - Insomnia [Unknown]
